FAERS Safety Report 7738852-X (Version None)
Quarter: 2011Q3

REPORT INFORMATION
  Report Type: 
  Country: None (occurrence: None)
  Receive Date: 20110909
  Receipt Date: 20110829
  Transmission Date: 20111222
  Serious: Yes (Death)
  Sender: FDA-Public Use
  Company Number: SE-BIOGENIDEC-2011BI031346

PATIENT
  Sex: Male

DRUGS (2)
  1. TYSABRI [Suspect]
     Indication: MULTIPLE SCLEROSIS
     Route: 042
     Dates: start: 20090129, end: 20100131
  2. AMPYRA [Concomitant]
     Dates: start: 20100601, end: 20100801

REACTIONS (2)
  - SECONDARY PROGRESSIVE MULTIPLE SCLEROSIS [None]
  - INTESTINAL PERFORATION [None]
